FAERS Safety Report 5114772-4 (Version None)
Quarter: 2006Q3

REPORT INFORMATION
  Report Type: 
  Country: None (occurrence: None)
  Receive Date: 20060926
  Receipt Date: 20060918
  Transmission Date: 20061208
  Serious: Yes (Other)
  Sender: FDA-Public Use
  Company Number: US-JNJFOC-20060904173

PATIENT
  Sex: Female
  Weight: 65.77 kg

DRUGS (6)
  1. TYLENOL (CAPLET) [Suspect]
  2. TYLENOL (CAPLET) [Suspect]
     Indication: ARTHRITIS
  3. MULTI-VITAMIN [Concomitant]
  4. VITAMIN E [Concomitant]
  5. VITAMIN B COMPLEX CAP [Concomitant]
  6. CALCIUM GLUCONATE [Concomitant]

REACTIONS (3)
  - NAUSEA [None]
  - VERTIGO [None]
  - VOMITING [None]
